FAERS Safety Report 5735496-6 (Version None)
Quarter: 2008Q2

REPORT INFORMATION
  Report Type: 
  Country: None (occurrence: None)
  Receive Date: 20080512
  Receipt Date: 20080430
  Transmission Date: 20081010
  Serious: Yes (Other)
  Sender: FDA-Public Use
  Company Number: US-PFIZER INC-2006041043

PATIENT
  Sex: Male
  Weight: 78 kg

DRUGS (10)
  1. LYRICA [Suspect]
     Indication: MUSCULOSKELETAL PAIN
     Route: 048
  2. LYRICA [Suspect]
     Indication: PERINEAL PAIN
  3. LYRICA [Suspect]
     Indication: NEURALGIA
  4. AMBIEN [Concomitant]
     Route: 048
  5. AMOXAPINE [Concomitant]
     Route: 048
  6. SEROQUEL [Concomitant]
     Route: 048
  7. LOTREL [Concomitant]
     Indication: HYPERTENSION
     Route: 048
  8. TAMSULOSIN HCL [Concomitant]
     Route: 048
  9. XALATAN [Concomitant]
     Indication: GLAUCOMA
     Route: 047
  10. TRIPTORELIN [Concomitant]
     Indication: PROSTATE CANCER
     Route: 030

REACTIONS (11)
  - BONE MARROW DISORDER [None]
  - DRUG INEFFECTIVE [None]
  - EMPHYSEMA [None]
  - HAEMATOCRIT DECREASED [None]
  - HAEMOGLOBIN DECREASED [None]
  - MEAN CELL VOLUME INCREASED [None]
  - MONOCYTE COUNT INCREASED [None]
  - SOMNOLENCE [None]
  - UNEVALUABLE EVENT [None]
  - VISION BLURRED [None]
  - WEIGHT INCREASED [None]
